FAERS Safety Report 21274453 (Version 1)
Quarter: 2022Q3

REPORT INFORMATION
  Report Type: Spontaneous
  Country: US (occurrence: None)
  Receive Date: 20220830
  Receipt Date: 20220830
  Transmission Date: 20221027
  Serious: Yes (Other)
  Sender: FDA-Public Use
  Company Number: None

PATIENT
  Age: 47 Year
  Sex: Female

DRUGS (8)
  1. TALTZ [Suspect]
     Active Substance: IXEKIZUMAB
  2. ATORVASTATIN [Concomitant]
  3. CLARITIN TAB [Concomitant]
  4. ESTRADIOL [Concomitant]
     Active Substance: ESTRADIOL
  5. FLONASE SPR [Concomitant]
  6. LOSARTAN POT TAB [Concomitant]
  7. MIRALAX POW [Concomitant]
  8. PEPCID TAB [Concomitant]

REACTIONS (1)
  - Hysterectomy [None]

NARRATIVE: CASE EVENT DATE: 20220801
